FAERS Safety Report 15403988 (Version 1)
Quarter: 2018Q3

REPORT INFORMATION
  Report Type: Spontaneous
  Country: US (occurrence: US)
  Receive Date: 20180919
  Receipt Date: 20180919
  Transmission Date: 20181010
  Serious: No
  Sender: FDA-Public Use
  Company Number: US-AVADEL SPECIALTY PHARMACEUTICALS, LLC-2018AVA00207

PATIENT
  Age: 80 Year
  Sex: Male
  Weight: 75.74 kg

DRUGS (35)
  1. COENZYME Q10 [Concomitant]
     Active Substance: UBIDECARENONE
     Dosage: 400 MG, 1X/DAY
  2. KEPPRA [Concomitant]
     Active Substance: LEVETIRACETAM
     Dosage: 1 TABLETS, 2X/DAY
  3. MAGNESIUM [Concomitant]
     Active Substance: MAGNESIUM
     Dosage: 200 MG, 3X/DAY
  4. SEROQUEL [Concomitant]
     Active Substance: QUETIAPINE FUMARATE
  5. MELATONIN [Concomitant]
     Active Substance: MELATONIN
     Dosage: UNK, AS NEEDED
  6. NOCTIVA [Suspect]
     Active Substance: DESMOPRESSIN ACETATE
     Indication: URETHRAL STENOSIS
  7. AMLODIPINE [Concomitant]
     Active Substance: AMLODIPINE BESYLATE
     Dosage: 10 MG, 1X/DAY
  8. ASPIRIN. [Concomitant]
     Active Substance: ASPIRIN
     Dosage: 81 MG, 1X/DAY AT BEDTIME
  9. DONEPEZIL. [Concomitant]
     Active Substance: DONEPEZIL
     Dosage: 10 MG, 1X/DAY
  10. FLONASE [Concomitant]
     Active Substance: FLUTICASONE PROPIONATE
  11. OSTEO BIFLEX [Concomitant]
     Active Substance: CHONDROITIN SULFATE A\GLUCOSAMINE
  12. PRESERVISION AREDS 2 [Concomitant]
     Active Substance: MINERALS\VITAMINS
     Dosage: UNK, 1X/DAY
  13. EFFEXOR [Concomitant]
     Active Substance: VENLAFAXINE HYDROCHLORIDE
     Dosage: UNK, 1X/DAY
     Route: 048
  14. VITAMIN E [Concomitant]
     Active Substance: .ALPHA.-TOCOPHEROL
     Dosage: 400 IU, UNK
  15. CENTRUM SILVER FOR MEN [Concomitant]
     Active Substance: MINERALS\VITAMINS
     Dosage: UNK, 1X/DAY
  16. HYDROCHLOROTHIAZIDE. [Concomitant]
     Active Substance: HYDROCHLOROTHIAZIDE
  17. HYDRALAZINE [Concomitant]
     Active Substance: HYDRALAZINE HYDROCHLORIDE
  18. VITAMIN D12 [Concomitant]
     Dosage: UNK MG, UNK
  19. FLAXSEED [Concomitant]
     Active Substance: FLAX SEED
     Dosage: UNK, 1X/DAY
  20. VITAMIN D3 [Concomitant]
     Active Substance: CHOLECALCIFEROL
     Dosage: 2000 UNK, UNK
  21. NOCTIVA [Suspect]
     Active Substance: DESMOPRESSIN ACETATE
     Indication: MICTURITION URGENCY
     Dosage: 0.83 ?G IN ONE NOSTRIL, 1X/DAY 30 MINUTES BEFORE BEDTIME, ALTERNATING NOSTRILS EACH DAY
     Route: 045
     Dates: start: 20180712, end: 20180720
  22. BROMFENAC [Concomitant]
     Active Substance: BROMFENAC SODIUM
     Dosage: 1 GTT, 2X/DAY TO EACH EYE
     Route: 031
  23. CITRA CAL VITAMIN D3 [Concomitant]
     Dosage: UNK, 1X/DAY
  24. DORZOLAMIDE TIMLOL [Concomitant]
     Dosage: 1 GTT, 1X/DAY, TO EACH EYE
     Route: 031
  25. LATANOPROST. [Concomitant]
     Active Substance: LATANOPROST
  26. LOVASTATIN. [Concomitant]
     Active Substance: LOVASTATIN
     Dosage: UNK, 1X/DAY
  27. RALOXIFENE. [Concomitant]
     Active Substance: RALOXIFENE
  28. BENADRYL [Concomitant]
     Active Substance: DIPHENHYDRAMINE HYDROCHLORIDE
     Dosage: UNK, AS NEEDED
  29. NOCTIVA [Suspect]
     Active Substance: DESMOPRESSIN ACETATE
     Indication: BENIGN PROSTATIC HYPERPLASIA
  30. CALCIUM CITRATE [Concomitant]
     Active Substance: CALCIUM CITRATE
  31. FERROUS GLUCONATE [Concomitant]
     Active Substance: FERROUS GLUCONATE
  32. LOSARTAN. [Concomitant]
     Active Substance: LOSARTAN
     Dosage: UNK, 1X/DAY
  33. MONTELUKAST [Concomitant]
     Active Substance: MONTELUKAST SODIUM
     Dosage: UNK MG, UNK
  34. TAMSULOSIN [Concomitant]
     Active Substance: TAMSULOSIN
     Dosage: 0.4 MG, 1X/DAY
  35. RANITIDINE. [Concomitant]
     Active Substance: RANITIDINE
     Dosage: 150 MG, 1X/DAY

REACTIONS (4)
  - Drug ineffective [Not Recovered/Not Resolved]
  - Decreased appetite [Recovered/Resolved]
  - Upper-airway cough syndrome [Recovered/Resolved]
  - Back pain [Recovered/Resolved]

NARRATIVE: CASE EVENT DATE: 201807
